FAERS Safety Report 5702590-5 (Version None)
Quarter: 2008Q2

REPORT INFORMATION
  Report Type: 
  Country: None (occurrence: None)
  Receive Date: 20080411
  Receipt Date: 20080407
  Transmission Date: 20081010
  Serious: Yes (Hospitalization)
  Sender: FDA-Public Use
  Company Number: FR-BAYER-200815805GPV

PATIENT
  Age: 41 Year
  Sex: Female

DRUGS (4)
  1. IZILOX [Suspect]
     Indication: BRONCHOPNEUMONIA
     Route: 048
     Dates: start: 20071221, end: 20071221
  2. PNEUMOREL [Suspect]
     Indication: DRUG USE FOR UNKNOWN INDICATION
     Route: 048
     Dates: start: 20071221, end: 20071221
  3. MAXILASE [Suspect]
     Indication: DRUG USE FOR UNKNOWN INDICATION
     Route: 048
     Dates: start: 20071221, end: 20071221
  4. CORTANCYL [Concomitant]
     Indication: DRUG USE FOR UNKNOWN INDICATION
     Route: 048
     Dates: start: 20071221

REACTIONS (8)
  - ANAPHYLACTIC SHOCK [None]
  - DYSPHAGIA [None]
  - EYELID OEDEMA [None]
  - FACE OEDEMA [None]
  - HYPOTENSION [None]
  - LIP OEDEMA [None]
  - RESPIRATORY DISTRESS [None]
  - RHINITIS [None]
